FAERS Safety Report 5303394-8 (Version None)
Quarter: 2007Q2

REPORT INFORMATION
  Report Type: 
  Country: None (occurrence: None)
  Receive Date: 20070420
  Receipt Date: 20070411
  Transmission Date: 20071010
  Serious: Yes (Other)
  Sender: FDA-Public Use
  Company Number: GB-GILEAD-2006-0009842

PATIENT
  Sex: Male
  Weight: 72 kg

DRUGS (1)
  1. HEPSERA [Suspect]
     Indication: HEPATITIS B VIRUS
     Dates: start: 20060524

REACTIONS (1)
  - CATARACT [None]
